FAERS Safety Report 4393009-8 (Version None)
Quarter: 2004Q3

REPORT INFORMATION
  Report Type: 
  Country: None (occurrence: None)
  Receive Date: 20040708
  Receipt Date: 20040707
  Transmission Date: 20050211
  Serious: Yes (Disabling)
  Sender: FDA-Public Use
  Company Number: US-GLAXOSMITHKLINE-A0517257A

PATIENT
  Sex: Female

DRUGS (5)
  1. LAMICTAL [Suspect]
     Indication: BIPOLAR DISORDER
     Route: 048
     Dates: end: 20040601
  2. ESKALITH [Concomitant]
  3. KLONOPIN [Concomitant]
  4. TOPAMAX [Concomitant]
  5. SYNTHROID [Concomitant]

REACTIONS (7)
  - CONFUSIONAL STATE [None]
  - JOINT EFFUSION [None]
  - MEMORY IMPAIRMENT [None]
  - PYREXIA [None]
  - SLEEP DISORDER [None]
  - SYSTEMIC LUPUS ERYTHEMATOSUS [None]
  - VASCULITIS [None]
